FAERS Safety Report 9645061 (Version 2)
Quarter: 2013Q4

REPORT INFORMATION
  Report Type: Report from Study
  Country: US (occurrence: US)
  Receive Date: 20131025
  Receipt Date: 20131025
  Transmission Date: 20140711
  Serious: Yes (Other)
  Sender: FDA-Public Use
  Company Number: US-JNJFOC-20130916875

PATIENT
  Age: 67 Year
  Sex: Female
  Weight: 73.48 kg

DRUGS (2)
  1. REMICADE [Suspect]
     Indication: CROHN^S DISEASE
     Dosage: SOMETIMES THE PATIENT RECEIVES INFUSION EVERY 8 WEEKS
     Route: 042
  2. PRILOSEC [Concomitant]
     Indication: GASTROOESOPHAGEAL REFLUX DISEASE
     Route: 048

REACTIONS (1)
  - Diverticulitis [Not Recovered/Not Resolved]
